FAERS Safety Report 6460577-1 (Version None)
Quarter: 2009Q4

REPORT INFORMATION
  Report Type: 
  Country: None (occurrence: None)
  Receive Date: 20091130
  Receipt Date: 20091126
  Transmission Date: 20100525
  Serious: Yes (Death, Other)
  Sender: FDA-Public Use
  Company Number: GB-WYE-G04971909

PATIENT
  Sex: Female

DRUGS (21)
  1. GEMTUZUMAB OZOGAMICIN [Suspect]
     Indication: ACUTE MYELOID LEUKAEMIA
     Dosage: 5MG, FREQUENCY UNKNOWN
     Route: 042
     Dates: start: 20091014
  2. CLINDAMYCIN [Concomitant]
     Dosage: 300 MG FREQUENCY UNKNOWN
     Dates: start: 20091007, end: 20091014
  3. TAZOCIN [Concomitant]
     Dosage: 4.5 G FREQUENCY UNKNOWN
     Dates: start: 20091015, end: 20091018
  4. AMIKACIN [Concomitant]
     Dosage: 900 MG FREQUENCY UNKNOWN
     Dates: start: 20091015, end: 20091017
  5. MEROPENEM [Concomitant]
     Dosage: 1G FREQUENCY UNKNOWN
     Dates: start: 20091018, end: 20091020
  6. FLUVASTATIN [Concomitant]
     Dosage: 80 MG FREQUENCY UNKNOWN
     Dates: end: 20091019
  7. DIGOXIN [Concomitant]
     Dosage: 125 MG FREQUENCY UNKNOWN
     Dates: end: 20091020
  8. AMLODIPINE [Concomitant]
     Dosage: 5MG FREQUENCY UNKNOWN
     Dates: end: 20091020
  9. RAMIPRIL [Concomitant]
     Dosage: 10MG FREQUENCY UNKNOWN
     Dates: end: 20091017
  10. POSACONAZOLE [Concomitant]
     Dosage: 200MG FREQUENCY UNKNOWN
     Dates: start: 20091008, end: 20091012
  11. HYDROXYCARBAMIDE [Concomitant]
     Dosage: 1G FREQUENCY UNKNOWN
     Dates: start: 20091008, end: 20091011
  12. ITRACONAZOLE [Concomitant]
     Dosage: 200MG FREQUENCY UNKNOWN
     Dates: start: 20091012, end: 20091019
  13. ACYCLOVIR [Concomitant]
     Dosage: 400MG FREQUENCY UNKNOWN
     Dates: start: 20091013, end: 20091019
  14. OMEPRAZOLE [Concomitant]
     Dosage: 20MG FREQUENCY UNKNOWN
     Dates: start: 20091013, end: 20091019
  15. CO-AMILOFRUSE [Concomitant]
     Dosage: 40MG FREQUENCY UNKNOWN
     Dates: start: 20091018, end: 20091019
  16. SANDO K [Concomitant]
     Dosage: 2 DOSES FREQUENCY UNKNOWN
     Dates: start: 20091017, end: 20091019
  17. DAPTOMYCIN [Concomitant]
     Dosage: 350MG FREQUENCY UNKNOWN
     Dates: start: 20091018, end: 20091019
  18. CODEINE [Concomitant]
     Dosage: 30MG FREQUENCY UNKNOWN
     Dates: start: 20091014, end: 20091014
  19. FUROSEMIDE [Concomitant]
     Dosage: 40-80MG FREQUENCY UNKNOWN
     Dates: start: 20091014, end: 20091017
  20. CHLORPHENIRAMINE MALEATE [Concomitant]
     Dosage: 10MG FREQUENCY UNKNOWN
     Dates: start: 20091014, end: 20091014
  21. ARA-C [Suspect]
     Route: 058
     Dates: start: 20091007, end: 20091015

REACTIONS (2)
  - BRONCHOPNEUMONIA [None]
  - CEREBROVASCULAR ACCIDENT [None]
